FAERS Safety Report 5856208-1 (Version None)
Quarter: 2008Q3

REPORT INFORMATION
  Report Type: 
  Country: None (occurrence: None)
  Receive Date: 20080825
  Receipt Date: 20080820
  Transmission Date: 20090109
  Serious: Yes (Death, Hospitalization)
  Sender: FDA-Public Use
  Company Number: A0744012A

PATIENT
  Age: 70 Year
  Sex: Male

DRUGS (4)
  1. AVANDIA [Suspect]
     Dosage: 4MG PER DAY
     Route: 048
     Dates: start: 20051201, end: 20070301
  2. METFORMIN [Concomitant]
     Dates: start: 20050101, end: 20070101
  3. METOPROLOL TARTRATE [Concomitant]
  4. SLIDING SCALE INSULIN [Concomitant]
     Dates: start: 20050101, end: 20070101

REACTIONS (7)
  - CARDIAC FAILURE CONGESTIVE [None]
  - CARDIOVASCULAR DISORDER [None]
  - DEATH [None]
  - FRACTURE [None]
  - LUNG DISORDER [None]
  - OEDEMA [None]
  - VISUAL IMPAIRMENT [None]
